FAERS Safety Report 5194722-5 (Version None)
Quarter: 2006Q4

REPORT INFORMATION
  Report Type: 
  Country: None (occurrence: None)
  Receive Date: 20061226
  Receipt Date: 20061226
  Transmission Date: 20070319
  Serious: Yes (Hospitalization)
  Sender: FDA-Public Use
  Company Number: None

PATIENT
  Age: 77 Year
  Sex: Female
  Weight: 55.3388 kg

DRUGS (17)
  1. ENBREL [Suspect]
     Indication: RHEUMATOID ARTHRITIS
     Dosage: 50 MG ONCE PER WEEK SQ
     Route: 058
     Dates: start: 20060324, end: 20060725
  2. PREDNISONE TAB [Concomitant]
  3. AVELOX [Concomitant]
  4. PRILOSEC [Concomitant]
  5. ALBUTEROL [Concomitant]
  6. FOSAMAX [Concomitant]
  7. THYROID TAB [Concomitant]
  8. METHOTREXATE [Concomitant]
  9. QVAR 40 [Concomitant]
  10. ZANTAC [Concomitant]
  11. ATROVENT [Concomitant]
  12. FOLATE [Concomitant]
  13. CALCIUM [Concomitant]
  14. ASCORBIC ACID [Concomitant]
  15. VITAMIN E [Concomitant]
  16. ROLAIDS [Concomitant]
  17. MUCINEX [Concomitant]

REACTIONS (2)
  - CARDIAC FAILURE CONGESTIVE [None]
  - PNEUMONIA [None]
